FAERS Safety Report 14162924 (Version 2)
Quarter: 2018Q2

REPORT INFORMATION
  Report Type: Spontaneous
  Country: FR (occurrence: FR)
  Receive Date: 20171107
  Receipt Date: 20180430
  Transmission Date: 20180711
  Serious: Yes (Other)
  Sender: FDA-Public Use
  Company Number: FR-MERCK KGAA-2033361

PATIENT
  Age: 46 Year
  Sex: Female

DRUGS (1)
  1. NOVOTHYROX [Suspect]
     Active Substance: LEVOTHYROXINE SODIUM
     Indication: BASEDOW^S DISEASE
     Route: 048

REACTIONS (20)
  - Depressed mood [Not Recovered/Not Resolved]
  - Abdominal pain [Not Recovered/Not Resolved]
  - Social problem [None]
  - Asthenia [None]
  - Blood thyroid stimulating hormone increased [None]
  - Blood thyroid stimulating hormone decreased [None]
  - Diffuse alopecia [Not Recovered/Not Resolved]
  - Gastrointestinal disorder [None]
  - Irritability [None]
  - Impaired work ability [None]
  - Diarrhoea [None]
  - Libido decreased [None]
  - Mental disorder [None]
  - Constipation [None]
  - Negative thoughts [None]
  - Social avoidant behaviour [None]
  - Feeling abnormal [None]
  - Mood swings [None]
  - Sleep disorder [Not Recovered/Not Resolved]
  - Fatigue [None]

NARRATIVE: CASE EVENT DATE: 201706
